FAERS Safety Report 24758027 (Version 4)
Quarter: 2025Q4

REPORT INFORMATION
  Report Type: Spontaneous
  Country: US (occurrence: US)
  Receive Date: 20241220
  Receipt Date: 20251030
  Transmission Date: 20260118
  Serious: No
  Sender: UCB
  Company Number: US-UCBSA-2024048034

PATIENT
  Age: 54 Year
  Weight: 135.15 kg

DRUGS (3)
  1. BIMZELX [Suspect]
     Active Substance: BIMEKIZUMAB-BKZX
     Indication: Psoriasis
     Dosage: 320 MILLIGRAM, EV 4 WEEKS
  2. BIMZELX [Suspect]
     Active Substance: BIMEKIZUMAB-BKZX
     Dosage: 320 MILLIGRAM, EV 4 WEEKS
  3. MECLIZINE [Concomitant]
     Active Substance: MECLIZINE HYDROCHLORIDE
     Indication: Product used for unknown indication

REACTIONS (7)
  - Headache [Unknown]
  - Gallbladder disorder [Unknown]
  - Dehydration [Unknown]
  - Dry mouth [Unknown]
  - Influenza [Unknown]
  - Ear infection [Unknown]
  - Vertigo [Unknown]
